FAERS Safety Report 17173862 (Version 1)
Quarter: 2019Q4

REPORT INFORMATION
  Report Type: Spontaneous
  Country: US (occurrence: US)
  Receive Date: 20191219
  Receipt Date: 20191219
  Transmission Date: 20200122
  Serious: No
  Sender: FDA-Public Use
  Company Number: US-PFIZER INC-2019543202

PATIENT
  Age: 63 Year
  Sex: Female

DRUGS (1)
  1. ELETRIPTAN HBR [Suspect]
     Active Substance: ELETRIPTAN HYDROBROMIDE
     Dosage: UNK

REACTIONS (4)
  - Visual field defect [Unknown]
  - Aura [Unknown]
  - Lymphadenopathy [Unknown]
  - Oropharyngeal pain [Unknown]
